FAERS Safety Report 14179251 (Version 1)
Quarter: 2017Q4

REPORT INFORMATION
  Report Type: Spontaneous
  Country: FR (occurrence: FR)
  Receive Date: 20171111
  Receipt Date: 20171111
  Transmission Date: 20180321
  Serious: Yes (Life-Threatening, Hospitalization, Other)
  Sender: FDA-Public Use
  Company Number: FR-INGENUS PHARMACEUTICALS, LLC-INF201710-000532

PATIENT
  Age: 56 Year
  Sex: Female

DRUGS (5)
  1. ACTINOMYCIN D [Concomitant]
     Active Substance: DACTINOMYCIN
  2. IFOSFAMIDE VINCRISTINE [Concomitant]
  3. GEMCITABINE DACARBAZINE [Concomitant]
  4. IRINOTECAN [Suspect]
     Active Substance: IRINOTECAN
     Indication: ALVEOLAR RHABDOMYOSARCOMA
     Route: 042
  5. TEMOZOLOMIDE. [Concomitant]
     Active Substance: TEMOZOLOMIDE
     Route: 048

REACTIONS (14)
  - Toxicity to various agents [Unknown]
  - Acute kidney injury [Unknown]
  - Neutropenia [Recovered/Resolved]
  - Dehydration [Unknown]
  - Vomiting [Unknown]
  - Crohn^s disease [Unknown]
  - Diverticulitis [Unknown]
  - Diarrhoea [Recovered/Resolved]
  - Stomatitis [Unknown]
  - Thrombocytopenia [Unknown]
  - Anaemia [Unknown]
  - Septic shock [Unknown]
  - Product use in unapproved indication [Unknown]
  - Transaminases increased [Unknown]
